FAERS Safety Report 6220815-7 (Version None)
Quarter: 2009Q2

REPORT INFORMATION
  Report Type: 
  Country: None (occurrence: None)
  Receive Date: 20090610
  Receipt Date: 20090603
  Transmission Date: 20091009
  Serious: Yes (Other)
  Sender: FDA-Public Use
  Company Number: US-BAYER-200814951BCC

PATIENT
  Age: 45 Year
  Sex: Female

DRUGS (2)
  1. RID LICE KILLING SHAMPOO [Suspect]
     Indication: DRUG USE FOR UNKNOWN INDICATION
     Dosage: 8 OZ BOTTLE
     Route: 061
     Dates: start: 20080101
  2. VITAMINS [Concomitant]
     Route: 065

REACTIONS (2)
  - ABORTION SPONTANEOUS [None]
  - NO ADVERSE EVENT [None]
